FAERS Safety Report 16889616 (Version 24)
Quarter: 2022Q2

REPORT INFORMATION
  Report Type: Other
  Country: DE (occurrence: None)
  Receive Date: 20191007
  Receipt Date: 20220429
  Transmission Date: 20220720
  Serious: Yes (Hospitalization, Other)
  Sender: FDA-Public Use
  Company Number: DE-ROCHE-2190506

PATIENT
  Age: 39 Year
  Sex: Male
  Weight: 63 kg

DRUGS (10)
  1. OCREVUS [Suspect]
     Active Substance: OCRELIZUMAB
     Indication: Secondary progressive multiple sclerosis
     Route: 042
     Dates: start: 20120101, end: 20190724
  2. OCREVUS [Suspect]
     Active Substance: OCRELIZUMAB
     Indication: Primary progressive multiple sclerosis
     Route: 042
     Dates: start: 20180815
  3. OCREVUS [Suspect]
     Active Substance: OCRELIZUMAB
     Route: 042
     Dates: start: 20190204
  4. DIMETHINDENE [Suspect]
     Active Substance: DIMETHINDENE
     Indication: Premedication
     Route: 065
  5. MIRABEGRON [Concomitant]
     Active Substance: MIRABEGRON
  6. MIRABEGRON [Concomitant]
     Active Substance: MIRABEGRON
     Dosage: ON MONDAY AND THRUSDAY
  7. CHOLECALCIFEROL [Concomitant]
     Active Substance: CHOLECALCIFEROL
  8. TOVIAZ [Concomitant]
     Active Substance: FESOTERODINE FUMARATE
  9. TOPIRAMATE [Concomitant]
     Active Substance: TOPIRAMATE
  10. DALFAMPRIDINE [Concomitant]
     Active Substance: DALFAMPRIDINE

REACTIONS (15)
  - Weight decreased [Recovering/Resolving]
  - Off label use [Unknown]
  - Urosepsis [Recovered/Resolved]
  - Blood immunoglobulin M decreased [Not Recovered/Not Resolved]
  - Gait disturbance [Recovered/Resolved]
  - Muscular weakness [Recovered/Resolved]
  - Asthenia [Unknown]
  - Hypervitaminosis [Not Recovered/Not Resolved]
  - Vitamin B12 deficiency [Recovered/Resolved]
  - Fatigue [Recovered/Resolved]
  - Pyrexia [Recovered/Resolved]
  - Diarrhoea [Recovered/Resolved]
  - Infection susceptibility increased [Recovered/Resolved]
  - Cystitis noninfective [Recovered/Resolved]
  - Urinary tract infection [Recovered/Resolved]

NARRATIVE: CASE EVENT DATE: 20120101
